FAERS Safety Report 9306331 (Version 1)
Quarter: 2013Q1

REPORT INFORMATION
  Report Type: Spontaneous
  Country: US (occurrence: None)
  Receive Date: 20121220
  Receipt Date: 20121220
  Transmission Date: 20140127
  Serious: No
  Sender: FDA-Public Use
  Company Number: 2010-116

PATIENT
  Sex: Female

DRUGS (2)
  1. PRIALT (ZICONOTIDE) INTRATHECAL INFUSION [Suspect]
     Route: 037
     Dates: end: 20090115
  2. DILAUDID (HYDROMORPHONE HYDROCHLORIDE) [Suspect]
     Route: 037
     Dates: end: 20090115

REACTIONS (7)
  - Pain [None]
  - Herpes zoster [None]
  - Mass [None]
  - Inflammation [None]
  - Medical device complication [None]
  - Monoplegia [None]
  - Granuloma [None]
